FAERS Safety Report 14718700 (Version 2)
Quarter: 2018Q2

REPORT INFORMATION
  Report Type: Report from Study
  Country: CA (occurrence: CA)
  Receive Date: 20180405
  Receipt Date: 20180513
  Transmission Date: 20180711
  Serious: Yes (Hospitalization, Other)
  Sender: FDA-Public Use
  Company Number: CA-BRISTOL-MYERS SQUIBB COMPANY-BMS-2017-083878

PATIENT
  Age: 65 Year
  Sex: Female

DRUGS (1)
  1. ABATACEPT [Suspect]
     Active Substance: ABATACEPT
     Indication: RHEUMATOID ARTHRITIS
     Dosage: 1000 MG, Q4WK
     Route: 042
     Dates: start: 20071030

REACTIONS (8)
  - Nasopharyngitis [Unknown]
  - Cough [Not Recovered/Not Resolved]
  - Heart rate increased [Unknown]
  - Atrial fibrillation [Unknown]
  - Pyrexia [Unknown]
  - Respiratory tract infection [Unknown]
  - Upper respiratory tract infection [Not Recovered/Not Resolved]
  - Pneumonia [Not Recovered/Not Resolved]

NARRATIVE: CASE EVENT DATE: 20170912
